FAERS Safety Report 17842333 (Version 2)
Quarter: 2020Q2

REPORT INFORMATION
  Report Type: Spontaneous
  Country: NO (occurrence: NO)
  Receive Date: 20200529
  Receipt Date: 20200602
  Transmission Date: 20200714
  Serious: Yes (Hospitalization, Disabling, Other)
  Sender: FDA-Public Use
  Company Number: NO-BAUSCH-BL-2020-015455

PATIENT
  Age: 74 Year
  Sex: Male

DRUGS (26)
  1. ALLOPURINOL. [Concomitant]
     Active Substance: ALLOPURINOL
     Indication: PRODUCT USED FOR UNKNOWN INDICATION
     Route: 065
  2. FLUCONAZOLE. [Concomitant]
     Active Substance: FLUCONAZOLE
     Indication: PRODUCT USED FOR UNKNOWN INDICATION
     Dosage: 100 MG
     Route: 065
  3. PREDNISOLONE. [Suspect]
     Active Substance: PREDNISOLONE
     Indication: PROPHYLAXIS
     Dosage: 50 MG, CYCLIC (6 CYCLES R-MINICHOP AT REDUCED DOSE) (CYCLICAL)
     Route: 048
     Dates: start: 20190409, end: 20190805
  4. MAGNESIUM [Concomitant]
     Active Substance: MAGNESIUM
     Indication: PRODUCT USED FOR UNKNOWN INDICATION
     Route: 065
  5. ACICLOVIR [Concomitant]
     Active Substance: ACYCLOVIR
     Indication: PRODUCT USED FOR UNKNOWN INDICATION
     Route: 065
  6. CYCLOPHOSPHAMIDE. [Concomitant]
     Active Substance: CYCLOPHOSPHAMIDE
     Indication: DIFFUSE LARGE B-CELL LYMPHOMA
     Dosage: 1300 MG, CYCLIC (6 CYCLES R-MINICHOP AT REDUCED DOSE) (CYCLICAL)
     Route: 065
     Dates: start: 20190409, end: 20190805
  7. PEGFILGRASTIM [Concomitant]
     Active Substance: PEGFILGRASTIM
     Indication: PROPHYLAXIS
     Dosage: 6 MG, CYCLIC (6 CYCLES R-MINICHOP AT REDUCED DOSE) (CYCLICAL)
     Route: 065
     Dates: start: 20190409, end: 20190805
  8. ATORVASTATIN [Concomitant]
     Active Substance: ATORVASTATIN
     Indication: PRODUCT USED FOR UNKNOWN INDICATION
     Route: 065
  9. DEXAMETHASONE. [Concomitant]
     Active Substance: DEXAMETHASONE
     Indication: PRODUCT USED FOR UNKNOWN INDICATION
     Route: 065
  10. ONDANSETRON [Concomitant]
     Active Substance: ONDANSETRON
     Indication: PROPHYLAXIS
     Dosage: 8 MG, CYCLIC (6 CYCLES R-MINICHOP AT REDUCED DOSE) (CYCLICAL)
     Route: 065
     Dates: start: 20190409, end: 20190805
  11. LACTULOSE. [Concomitant]
     Active Substance: LACTULOSE
     Indication: PRODUCT USED FOR UNKNOWN INDICATION
     Dosage: AS NEEDED
     Route: 065
  12. OXYCODONE HYDROCHLORIDE. [Concomitant]
     Active Substance: OXYCODONE HYDROCHLORIDE
     Indication: PRODUCT USED FOR UNKNOWN INDICATION
     Route: 065
  13. CYTARABINE. [Suspect]
     Active Substance: CYTARABINE
     Indication: DIFFUSE LARGE B-CELL LYMPHOMA
     Dosage: TRIPLE INTRATECHAL CHEMOTHERAPY WITH CYTARABIN, PREDNISOLON, AND MTX 6 CYCLES (ACCORDING TO NATIONAL
     Route: 037
     Dates: start: 20190409, end: 20190805
  14. OXYCODONE HYDROCHLORIDE. [Concomitant]
     Active Substance: OXYCODONE HYDROCHLORIDE
     Dosage: AS NEEDED
     Route: 065
  15. DOXORUBICIN HYDROCHLORIDE. [Concomitant]
     Active Substance: DOXORUBICIN HYDROCHLORIDE
     Indication: DIFFUSE LARGE B-CELL LYMPHOMA
     Dosage: 62 MG, CYCLIC (6 CYCLES R-MINICHOP AT REDUCED DOSE) (CYCLICAL)
     Route: 065
     Dates: start: 20190409, end: 20190805
  16. METOCLOPRAMIDE HYDROCHLORIDE. [Concomitant]
     Active Substance: METOCLOPRAMIDE HYDROCHLORIDE
     Indication: PRODUCT USED FOR UNKNOWN INDICATION
     Dosage: AS NEEDED
     Route: 065
  17. QUETIAPINE FUMARATE. [Concomitant]
     Active Substance: QUETIAPINE FUMARATE
     Indication: PRODUCT USED FOR UNKNOWN INDICATION
     Dosage: AS NEEDED
     Route: 065
  18. SULFAMETHOXAZOLE, TRIMETHOPRIM [Concomitant]
     Active Substance: SULFAMETHOXAZOLE\TRIMETHOPRIM
     Indication: PRODUCT USED FOR UNKNOWN INDICATION
     Route: 065
  19. ACETYLSALICYLIC ACID, MAGNESIUM OXIDE [Concomitant]
     Indication: PRODUCT USED FOR UNKNOWN INDICATION
     Route: 065
  20. METOPROLOL. [Concomitant]
     Active Substance: METOPROLOL
     Indication: PRODUCT USED FOR UNKNOWN INDICATION
     Route: 065
  21. OXAZEPAM. [Concomitant]
     Active Substance: OXAZEPAM
     Indication: PRODUCT USED FOR UNKNOWN INDICATION
     Dosage: AS NEEDED
     Route: 065
  22. MIRTAZAPINE. [Concomitant]
     Active Substance: MIRTAZAPINE
     Indication: PRODUCT USED FOR UNKNOWN INDICATION
     Route: 065
  23. METHOTREXATE SODIUM. [Suspect]
     Active Substance: METHOTREXATE SODIUM
     Indication: DIFFUSE LARGE B-CELL LYMPHOMA
     Route: 037
     Dates: start: 20190408, end: 20190805
  24. VINCRISTINE [Concomitant]
     Active Substance: VINCRISTINE
     Indication: DIFFUSE LARGE B-CELL LYMPHOMA
     Dosage: 2 MG, CYCLIC (6 CYCLES R-MINICHOP AT REDUCED DOSE) (CYCLICAL)
     Route: 065
     Dates: start: 20190409, end: 20190805
  25. PREDNISOLONE. [Suspect]
     Active Substance: PREDNISOLONE
     Indication: DIFFUSE LARGE B-CELL LYMPHOMA
     Dosage: 6 CYCLES (ACCORDING TO NATIONAL GUIDELINES) (CYCLICAL)
     Route: 037
     Dates: start: 20190408, end: 20190805
  26. RITUXIMAB. [Concomitant]
     Active Substance: RITUXIMAB
     Indication: DIFFUSE LARGE B-CELL LYMPHOMA
     Dosage: 660 MG, CYCLIC (6 CYCLES R-MINICHOP AT REDUCED DOSE) (CYCLICAL)
     Route: 065
     Dates: start: 20190409, end: 20190805

REACTIONS (17)
  - Decubitus ulcer [Recovering/Resolving]
  - Spinal cord injury thoracic [Unknown]
  - Gait disturbance [Not Recovered/Not Resolved]
  - Malaise [Unknown]
  - Urinary incontinence [Unknown]
  - Psychiatric symptom [Unknown]
  - Fear of falling [Unknown]
  - Dysstasia [Not Recovered/Not Resolved]
  - Infection [Recovered/Resolved]
  - Spinal cord paralysis [Not Recovered/Not Resolved]
  - Sensory loss [Unknown]
  - Sensory disturbance [Unknown]
  - Urinary tract infection [Unknown]
  - Anal incontinence [Unknown]
  - Myelopathy [Not Recovered/Not Resolved]
  - Mobility decreased [Unknown]
  - Balance disorder [Not Recovered/Not Resolved]

NARRATIVE: CASE EVENT DATE: 2019
